FAERS Safety Report 14187238 (Version 1)
Quarter: 2017Q4

REPORT INFORMATION
  Report Type: Spontaneous
  Country: AU (occurrence: AU)
  Receive Date: 20171114
  Receipt Date: 20171114
  Transmission Date: 20180321
  Serious: Yes (Hospitalization, Other)
  Sender: FDA-Public Use
  Company Number: AU-BAYER-2017-213730

PATIENT
  Sex: Female

DRUGS (1)
  1. MIRENA [Suspect]
     Active Substance: LEVONORGESTREL
     Dosage: 20 MCG/24HR, CONT
     Route: 015

REACTIONS (9)
  - Fibromyalgia [Recovering/Resolving]
  - Aphasia [None]
  - Pain in extremity [Recovering/Resolving]
  - Genital haemorrhage [None]
  - Uterine infection [None]
  - Fatigue [Recovering/Resolving]
  - Gait inability [None]
  - Tenderness [Recovering/Resolving]
  - Genital haemorrhage [Recovered/Resolved]
